FAERS Safety Report 15454444 (Version 1)
Quarter: 2018Q3

REPORT INFORMATION
  Report Type: Spontaneous
  Country: US (occurrence: US)
  Receive Date: 20180928
  Receipt Date: 20180928
  Transmission Date: 20181010
  Serious: Yes (Life-Threatening, Hospitalization)
  Sender: FDA-Public Use
  Company Number: None

PATIENT
  Age: 46 Year
  Sex: Female
  Weight: 67.3 kg

DRUGS (1)
  1. ALCORTIN A [Suspect]
     Active Substance: ALOE VERA LEAF\HYDROCORTISONE ACETATE\IODOQUINOL
     Indication: TINEA VERSICOLOUR
     Route: 061

REACTIONS (5)
  - Rectal haemorrhage [None]
  - Epistaxis [None]
  - Menorrhagia [None]
  - Immune thrombocytopenic purpura [None]
  - Petechiae [None]

NARRATIVE: CASE EVENT DATE: 20180925
